FAERS Safety Report 7880061-8 (Version None)
Quarter: 2011Q4

REPORT INFORMATION
  Report Type: 
  Country: None (occurrence: None)
  Receive Date: 20111101
  Receipt Date: 20111007
  Transmission Date: 20120403
  Serious: Yes (Life-Threatening)
  Sender: FDA-Public Use
  Company Number: BR-ROCHE-1008253

PATIENT
  Age: 65 Year
  Sex: Female

DRUGS (2)
  1. CAPECITABINE [Suspect]
     Indication: DISEASE PROGRESSION
     Route: 065
     Dates: start: 20080801, end: 20090801
  2. SORAFENIB [Suspect]
     Indication: DISEASE PROGRESSION
     Route: 065
     Dates: start: 20080801, end: 20090801

REACTIONS (4)
  - DISEASE PROGRESSION [None]
  - METASTASES TO EYE [None]
  - BREAST CANCER [None]
  - NEOPLASM PROGRESSION [None]
